FAERS Safety Report 6858839-9 (Version None)
Quarter: 2010Q3

REPORT INFORMATION
  Report Type: 
  Country: None (occurrence: None)
  Receive Date: 20100719
  Receipt Date: 20080403
  Transmission Date: 20110219
  Serious: Yes (Other)
  Sender: FDA-Public Use
  Company Number: US-PFIZER INC-2008014806

PATIENT
  Sex: Male
  Weight: 76.363 kg

DRUGS (7)
  1. CHANTIX [Suspect]
     Indication: SMOKING CESSATION THERAPY
     Dates: start: 20080130
  2. FENTANYL [Concomitant]
  3. SKELAXIN [Concomitant]
     Indication: MUSCLE RELAXANT THERAPY
  4. AMBIEN [Concomitant]
     Indication: SLEEP DISORDER
  5. LYRICA [Concomitant]
  6. VICODIN [Concomitant]
  7. VALIUM [Concomitant]

REACTIONS (6)
  - ABNORMAL DREAMS [None]
  - EUPHORIC MOOD [None]
  - HALLUCINATION [None]
  - HEADACHE [None]
  - INSOMNIA [None]
  - STRESS [None]
